FAERS Safety Report 5237630-3 (Version None)
Quarter: 2007Q1

REPORT INFORMATION
  Report Type: 
  Country: None (occurrence: None)
  Receive Date: 20070214
  Receipt Date: 20070122
  Transmission Date: 20070707
  Serious: Yes (Other)
  Sender: FDA-Public Use
  Company Number: PR-BAYER-200710306BWH

PATIENT
  Age: 54 Year
  Sex: Male

DRUGS (1)
  1. AVELOX [Suspect]
     Indication: UNEVALUABLE EVENT
     Dosage: TOTAL DAILY DOSE: 400 MG  UNIT DOSE: 400 MG
     Route: 048
     Dates: start: 20070119, end: 20070119

REACTIONS (5)
  - CUTANEOUS VASCULITIS [None]
  - HYPERSENSITIVITY [None]
  - LIP SWELLING [None]
  - PRURITUS [None]
  - RASH [None]
